FAERS Safety Report 11397121 (Version 1)
Quarter: 2015Q3

REPORT INFORMATION
  Report Type: Spontaneous
  Country: PH (occurrence: PH)
  Receive Date: 20150819
  Receipt Date: 20150819
  Transmission Date: 20151125
  Serious: Yes (Life-Threatening)
  Sender: FDA-Public Use
  Company Number: PH-PFIZER INC-2015166237

PATIENT
  Age: 28 Year
  Sex: Male
  Weight: 70 kg

DRUGS (5)
  1. ZITHROMAX [Suspect]
     Active Substance: AZITHROMYCIN DIHYDRATE
     Indication: ATYPICAL PNEUMONIA
  2. ZITHROMAX [Suspect]
     Active Substance: AZITHROMYCIN DIHYDRATE
     Indication: ANTIBIOTIC THERAPY
     Dosage: 500 MG, 1X/DAY
     Route: 042
     Dates: start: 20150413, end: 20150413
  3. PARACETAMOL [Concomitant]
     Active Substance: ACETAMINOPHEN
     Indication: PYREXIA
     Dosage: 500 MG, Q4 HOURS
     Route: 048
     Dates: start: 20150408, end: 20150413
  4. CLINDAMYCIN [Concomitant]
     Active Substance: CLINDAMYCIN\CLINDAMYCIN PHOSPHATE
     Indication: ANTIBIOTIC THERAPY
     Dosage: 300 MG, 1X/DAY
     Route: 048
     Dates: start: 20150408, end: 20150413
  5. CO-AMOXICLAV /00756801/ [Concomitant]
     Active Substance: AMOXICILLIN\CLAVULANIC ACID
     Indication: ANTIBIOTIC THERAPY
     Dosage: 625 MG, 2X/DAY
     Route: 048
     Dates: start: 20150412, end: 20150413

REACTIONS (4)
  - Pruritus [Recovered/Resolved]
  - Urticaria [Recovered/Resolved]
  - Rash [Recovered/Resolved]
  - Erythema [Recovered/Resolved]

NARRATIVE: CASE EVENT DATE: 20150413
